FAERS Safety Report 16885255 (Version 2)
Quarter: 2019Q4

REPORT INFORMATION
  Report Type: Report from Study
  Country: BR (occurrence: BR)
  Receive Date: 20191004
  Receipt Date: 20191208
  Transmission Date: 20200122
  Serious: Yes (Death, Hospitalization)
  Sender: FDA-Public Use
  Company Number: BR-B.I. PHARMACEUTICALS,INC./RIDGEFIELD-2019-MR-000396

PATIENT
  Age: 78 Year
  Sex: Male
  Weight: 65 kg

DRUGS (11)
  1. OFEV [Suspect]
     Active Substance: NINTEDANIB
     Route: 048
     Dates: start: 20190901, end: 20190902
  2. ACETILCISTEINA [Concomitant]
     Active Substance: ACETYLCYSTEINE
     Indication: PRODUCTIVE COUGH
     Route: 048
  3. AAS [Concomitant]
     Active Substance: ASPIRIN
     Indication: ISCHAEMIC STROKE
     Route: 048
  4. SINVASTATINA [Concomitant]
     Active Substance: SIMVASTATIN
     Indication: CEREBROVASCULAR ACCIDENT
     Route: 065
  5. OFEV [Suspect]
     Active Substance: NINTEDANIB
     Indication: IDIOPATHIC PULMONARY FIBROSIS
     Route: 048
     Dates: start: 20190530, end: 201906
  6. OFEV [Suspect]
     Active Substance: NINTEDANIB
     Route: 048
     Dates: start: 201906, end: 201906
  7. PREDNISOLONA [PREDNISOLONE] [Concomitant]
     Indication: IDIOPATHIC PULMONARY FIBROSIS
     Route: 065
  8. PREDSIM [Concomitant]
     Active Substance: PREDNISOLONE
     Indication: INFLAMMATION
     Route: 048
  9. OMEPRAZOL [Concomitant]
     Active Substance: OMEPRAZOLE
     Indication: GASTRIC DISORDER
     Route: 048
  10. SERTRALINE [Concomitant]
     Active Substance: SERTRALINE HYDROCHLORIDE
     Indication: ANXIETY
     Route: 048
  11. OFEV [Suspect]
     Active Substance: NINTEDANIB
     Route: 048
     Dates: start: 201906, end: 20190831

REACTIONS (33)
  - Idiopathic pulmonary fibrosis [Fatal]
  - Diarrhoea infectious [Recovered/Resolved]
  - Dyspnoea [Unknown]
  - Lung disorder [Not Recovered/Not Resolved]
  - Abdominal pain [Not Recovered/Not Resolved]
  - Gait disturbance [Unknown]
  - Asthenia [Not Recovered/Not Resolved]
  - Pneumonia [Fatal]
  - Pneumonia [Recovered/Resolved]
  - Diarrhoea [Not Recovered/Not Resolved]
  - Gastrointestinal infection [Recovered/Resolved]
  - Dysuria [Not Recovered/Not Resolved]
  - Diarrhoea [Not Recovered/Not Resolved]
  - Diarrhoea [Recovered/Resolved]
  - Nausea [Not Recovered/Not Resolved]
  - Bedridden [Not Recovered/Not Resolved]
  - Urinary tract pain [Recovered/Resolved]
  - Gastrointestinal pain [Not Recovered/Not Resolved]
  - Anal haemorrhage [Recovered/Resolved]
  - Hypothermia [Not Recovered/Not Resolved]
  - Bladder pain [Not Recovered/Not Resolved]
  - Retching [Recovered/Resolved]
  - Fatigue [Unknown]
  - Asthenia [Unknown]
  - Sepsis [Fatal]
  - Diarrhoea haemorrhagic [Recovered/Resolved]
  - Confusional state [Recovered/Resolved]
  - Decreased appetite [Not Recovered/Not Resolved]
  - Diarrhoea [Not Recovered/Not Resolved]
  - Dyspnoea [Not Recovered/Not Resolved]
  - Weight decreased [Recovered/Resolved]
  - Weight decreased [Unknown]
  - Diet refusal [Recovered/Resolved]

NARRATIVE: CASE EVENT DATE: 201906
